FAERS Safety Report 13958802 (Version 2)
Quarter: 2017Q4

REPORT INFORMATION
  Report Type: Spontaneous
  Country: NO (occurrence: NO)
  Receive Date: 20170912
  Receipt Date: 20171016
  Transmission Date: 20180320
  Serious: Yes (Other)
  Sender: FDA-Public Use
  Company Number: NO-ACCORD-058175

PATIENT
  Age: 20 Year
  Sex: Male

DRUGS (3)
  1. ARIPIPRAZOLE. [Suspect]
     Active Substance: ARIPIPRAZOLE
     Indication: MENTAL DISORDER
  2. QUETIAPINE. [Suspect]
     Active Substance: QUETIAPINE
     Indication: MENTAL DISORDER
     Dosage: AT THE TIME OF CONSULTATION USING 200 MG
  3. ASENAPINE/ASENAPINE MALEATE [Suspect]
     Active Substance: ASENAPINE MALEATE
     Indication: MENTAL DISORDER

REACTIONS (2)
  - Oculogyric crisis [Recovering/Resolving]
  - Dystonia [Recovering/Resolving]
